FAERS Safety Report 6853121-8 (Version None)
Quarter: 2010Q3

REPORT INFORMATION
  Report Type: 
  Country: None (occurrence: None)
  Receive Date: 20100717
  Receipt Date: 20071128
  Transmission Date: 20110219
  Serious: No
  Sender: FDA-Public Use
  Company Number: US-PFIZER INC-2007102390

PATIENT
  Sex: Male

DRUGS (8)
  1. CHANTIX [Suspect]
     Indication: SMOKING CESSATION THERAPY
     Route: 048
  2. MICRONASE [Concomitant]
  3. ZYRTEC [Concomitant]
  4. GLYBURIDE [Concomitant]
  5. NIASPAN [Concomitant]
  6. CRESTOR [Concomitant]
  7. SPIRIVA [Concomitant]
  8. OMACOR [Concomitant]

REACTIONS (1)
  - BACK PAIN [None]
